FAERS Safety Report 23595404 (Version 1)
Quarter: 2024Q1

REPORT INFORMATION
  Report Type: Spontaneous
  Country: TR (occurrence: TR)
  Receive Date: 20240305
  Receipt Date: 20240305
  Transmission Date: 20240410
  Serious: Yes (Life-Threatening, Hospitalization, Other)
  Sender: FDA-Public Use
  Company Number: TR-MLMSERVICE-20240216-4837433-2

PATIENT
  Age: 51 Year
  Sex: Male

DRUGS (3)
  1. MYCOPHENOLATE SODIUM [Suspect]
     Active Substance: MYCOPHENOLATE SODIUM
     Indication: Immunosuppressant drug therapy
     Dosage: 2 X 360 MG
  2. TACROLIMUS [Suspect]
     Active Substance: TACROLIMUS
     Indication: Immunosuppressant drug therapy
     Dosage: 2 X 3.5MG
  3. DELTACORTRIL [Suspect]
     Active Substance: PREDNISOLONE
     Indication: Immunosuppressant drug therapy
     Dosage: 1 X 5 MG

REACTIONS (2)
  - Parvovirus B19 infection [Unknown]
  - Aplasia pure red cell [Unknown]
